FAERS Safety Report 17188701 (Version 1)
Quarter: 2019Q4

REPORT INFORMATION
  Report Type: Other
  Country: US (occurrence: US)
  Receive Date: 20191222
  Receipt Date: 20191222
  Transmission Date: 20200122
  Serious: No
  Sender: FDA-Public Use
  Company Number: US-ACORDA-ACO_161389_2019

PATIENT
  Sex: Male

DRUGS (1)
  1. INBRIJA [Suspect]
     Active Substance: LEVODOPA
     Indication: PARKINSON^S DISEASE
     Dosage: 84 MILLIGRAM, PRN, NOT TO EXCEED 5 DOSES DAILY

REACTIONS (7)
  - Muscle spasms [Unknown]
  - Dystonia [Not Recovered/Not Resolved]
  - Movement disorder [Not Recovered/Not Resolved]
  - Condition aggravated [Not Recovered/Not Resolved]
  - Joint hyperextension [Unknown]
  - Musculoskeletal stiffness [Not Recovered/Not Resolved]
  - Joint instability [Unknown]
